FAERS Safety Report 4702413-7 (Version None)
Quarter: 2005Q2

REPORT INFORMATION
  Report Type: 
  Country: None (occurrence: None)
  Receive Date: 20050629
  Receipt Date: 20040914
  Transmission Date: 20051028
  Serious: Yes (Life-Threatening)
  Sender: FDA-Public Use
  Company Number: US-GLAXOSMITHKLINE-A0525600A

PATIENT
  Age: 10 Year
  Sex: Male
  Weight: 33.2 kg

DRUGS (4)
  1. FORTAZ [Suspect]
     Indication: PSEUDOMONAS INFECTION
     Dosage: 2G THREE TIMES PER DAY
     Route: 042
     Dates: start: 20040816, end: 20040914
  2. MOTRIN [Concomitant]
  3. HEPARIN [Concomitant]
  4. NORMAL SALINE [Concomitant]

REACTIONS (3)
  - ANAEMIA [None]
  - NEUTROPENIA [None]
  - WHITE BLOOD CELL COUNT DECREASED [None]
